FAERS Safety Report 24608952 (Version 5)
Quarter: 2025Q2

REPORT INFORMATION
  Report Type: Spontaneous
  Country: US (occurrence: US)
  Receive Date: 20241112
  Receipt Date: 20250515
  Transmission Date: 20250717
  Serious: No
  Sender: BIOGEN
  Company Number: US-BIOGEN-2024BI01287151

PATIENT
  Sex: Female

DRUGS (3)
  1. VUMERITY [Suspect]
     Active Substance: DIROXIMEL FUMARATE
     Indication: Multiple sclerosis
     Route: 050
     Dates: start: 20240925
  2. VUMERITY [Suspect]
     Active Substance: DIROXIMEL FUMARATE
     Dosage: TAKE 2 CAPSULES (462MG) BY MOUTH TWICE DAILY.
     Route: 050
     Dates: start: 20241004, end: 202410
  3. BACLOFEN [Concomitant]
     Active Substance: BACLOFEN
     Route: 050

REACTIONS (7)
  - Product dose omission issue [Unknown]
  - Dental caries [Not Recovered/Not Resolved]
  - Ear infection [Unknown]
  - Illness [Unknown]
  - Fatigue [Unknown]
  - Muscular weakness [Recovered/Resolved]
  - Flushing [Recovered/Resolved]

NARRATIVE: CASE EVENT DATE: 20240101
